FAERS Safety Report 6130870-0 (Version None)
Quarter: 2009Q1

REPORT INFORMATION
  Report Type: 
  Country: None (occurrence: None)
  Receive Date: 20090325
  Receipt Date: 20090320
  Transmission Date: 20090719
  Serious: Yes (Other)
  Sender: FDA-Public Use
  Company Number: US-BRISTOL-MYERS SQUIBB COMPANY-14556013

PATIENT
  Age: 66 Year
  Sex: Male

DRUGS (3)
  1. METFORMIN HCL [Suspect]
     Indication: DIABETES MELLITUS
     Route: 065
     Dates: start: 20040320
  2. LANTUS [Suspect]
     Indication: DIABETES MELLITUS
     Route: 065
     Dates: start: 20020216
  3. ACTOS [Suspect]
     Indication: DIABETES MELLITUS
     Route: 065
     Dates: start: 19991012, end: 20081029

REACTIONS (3)
  - CONVULSION [None]
  - CORONARY ARTERY BYPASS [None]
  - EYE EXCISION [None]
